FAERS Safety Report 7676925-0 (Version None)
Quarter: 2011Q3

REPORT INFORMATION
  Report Type: 
  Country: None (occurrence: None)
  Receive Date: 20110811
  Receipt Date: 20110801
  Transmission Date: 20111222
  Serious: No
  Sender: FDA-Public Use
  Company Number: PHHY2011US15283

PATIENT
  Sex: Male
  Weight: 86.168 kg

DRUGS (9)
  1. TASIGNA [Suspect]
     Dosage: 200 MG, BID
     Dates: start: 20110111
  2. METFORMIN HCL [Concomitant]
     Dosage: UNK UKN, UNK
  3. TASIGNA [Suspect]
     Dosage: 200 MG, BID
     Route: 048
  4. DIOVAN [Concomitant]
     Dosage: UNK UKN, UNK
  5. HYDROCHLOROTHIAZIDE [Concomitant]
     Dosage: UNK UKN, UNK
  6. TASIGNA [Suspect]
     Indication: NEOPLASM MALIGNANT
     Dosage: 400 MG, BID
     Route: 048
     Dates: start: 20110111
  7. ENALAPRIL MALEATE [Concomitant]
     Dosage: UNK UKN, UNK
  8. CENTRUM [Concomitant]
     Dosage: UNK UKN, UNK
  9. FISH OIL [Concomitant]
     Dosage: UNK UKN, UNK

REACTIONS (6)
  - LETHARGY [None]
  - NAUSEA [None]
  - INCORRECT DOSE ADMINISTERED [None]
  - MUSCLE SPASMS [None]
  - DIARRHOEA [None]
  - DRY SKIN [None]
